FAERS Safety Report 8423905-3 (Version None)
Quarter: 2012Q2

REPORT INFORMATION
  Report Type: 
  Country: None (occurrence: None)
  Receive Date: 20120608
  Receipt Date: 20120530
  Transmission Date: 20120825
  Serious: No
  Sender: FDA-Public Use
  Company Number: US-ASTRAZENECA-2007UW13695

PATIENT
  Age: 63 Year
  Sex: Female

DRUGS (2)
  1. TOPROL-XL [Suspect]
     Route: 048
  2. PLENDIL [Suspect]
     Route: 048

REACTIONS (4)
  - DELUSION [None]
  - APHAGIA [None]
  - GINGIVAL PAIN [None]
  - GINGIVAL SWELLING [None]
